FAERS Safety Report 4402339-2 (Version None)
Quarter: 2004Q3

REPORT INFORMATION
  Report Type: 
  Country: None (occurrence: None)
  Receive Date: 20040720
  Receipt Date: 20040528
  Transmission Date: 20050211
  Serious: Yes (Other)
  Sender: FDA-Public Use
  Company Number: PHBS2004BR07080

PATIENT
  Age: 26 Year
  Sex: Male
  Weight: 70 kg

DRUGS (3)
  1. LEPONEX [Suspect]
     Indication: SCHIZOPHRENIA
     Dosage: 100 MG, QID
     Route: 048
     Dates: start: 20000101
  2. LORAX [Concomitant]
     Indication: SCHIZOPHRENIA
     Dosage: 1.5 DF, BID
     Route: 048
  3. LEXAPRO [Concomitant]
     Indication: SCHIZOPHRENIA
     Dosage: 1 TABLET/D
     Route: 048

REACTIONS (4)
  - ANOREXIA [None]
  - DENGUE FEVER [None]
  - HYPERHIDROSIS [None]
  - PLATELET COUNT DECREASED [None]
